FAERS Safety Report 22181333 (Version 1)
Quarter: 2023Q2

REPORT INFORMATION
  Report Type: Spontaneous
  Country: US (occurrence: US)
  Receive Date: 20230406
  Receipt Date: 20230406
  Transmission Date: 20230721
  Serious: Yes (Hospitalization)
  Sender: FDA-Public Use
  Company Number: US-drreddys-LIT/USA/23/0163193

PATIENT
  Age: 61 Year
  Sex: Female

DRUGS (5)
  1. ATORVASTATIN [Suspect]
     Active Substance: ATORVASTATIN
     Indication: Hypercholesterolaemia
  2. ATORVASTATIN [Suspect]
     Active Substance: ATORVASTATIN
  3. ATORVASTATIN [Suspect]
     Active Substance: ATORVASTATIN
  4. ACETAMINOPHEN [Suspect]
     Active Substance: ACETAMINOPHEN
     Indication: Product used for unknown indication
  5. OMEGA-3 FATTY ACIDS [Suspect]
     Active Substance: OMEGA-3 FATTY ACIDS
     Indication: Product used for unknown indication

REACTIONS (2)
  - Drug-induced liver injury [Recovering/Resolving]
  - Hepatitis E virus test positive [Recovering/Resolving]
